FAERS Safety Report 21352030 (Version 1)
Quarter: 2022Q3

REPORT INFORMATION
  Report Type: Spontaneous
  Country: CN (occurrence: CN)
  Receive Date: 20220920
  Receipt Date: 20220920
  Transmission Date: 20221027
  Serious: Yes (Hospitalization, Other)
  Sender: FDA-Public Use
  Company Number: CN-009507513-2209CHN006332

PATIENT
  Age: 84 Year
  Sex: Male
  Weight: 60 kg

DRUGS (4)
  1. CILASTATIN SODIUM\IMIPENEM [Suspect]
     Active Substance: CILASTATIN SODIUM\IMIPENEM
     Indication: Lower respiratory tract infection
     Dosage: 500 MG, Q6H
     Route: 041
     Dates: start: 20220812, end: 20220820
  2. LEVOFLOXACIN HYDROCHLORIDE [Suspect]
     Active Substance: LEVOFLOXACIN HYDROCHLORIDE
     Indication: Lower respiratory tract infection
     Dosage: 0.5 G, QD
     Route: 041
     Dates: start: 20220816, end: 20220821
  3. SODIUM CHLORIDE [Concomitant]
     Active Substance: SODIUM CHLORIDE
     Indication: Medication dilution
     Dosage: 100 ML, Q6H
     Route: 041
     Dates: start: 20220812, end: 20220820
  4. SODIUM CHLORIDE [Concomitant]
     Active Substance: SODIUM CHLORIDE
     Dosage: 250 ML, QD
     Route: 041
     Dates: start: 20220816, end: 20220821

REACTIONS (3)
  - Delirium [Recovered/Resolved]
  - Muscle twitching [Unknown]
  - Tremor [Unknown]

NARRATIVE: CASE EVENT DATE: 20220820
